FAERS Safety Report 5899463-4 (Version None)
Quarter: 2008Q3

REPORT INFORMATION
  Report Type: 
  Country: None (occurrence: None)
  Receive Date: 20080926
  Receipt Date: 20080813
  Transmission Date: 20090109
  Serious: No
  Sender: FDA-Public Use
  Company Number: US-BAYER-US-2007-039891

PATIENT
  Age: 64 Year
  Sex: Female

DRUGS (1)
  1. MAGNEVIST [Suspect]
     Indication: NUCLEAR MAGNETIC RESONANCE IMAGING BRAIN
     Dates: start: 20071002, end: 20071002

REACTIONS (13)
  - DIPLOPIA [None]
  - DIZZINESS [None]
  - EYE PAIN [None]
  - FATIGUE [None]
  - GINGIVAL PAIN [None]
  - HYPOAESTHESIA FACIAL [None]
  - MUSCULOSKELETAL STIFFNESS [None]
  - NYSTAGMUS [None]
  - PARAESTHESIA [None]
  - SALIVARY HYPERSECRETION [None]
  - SOMNOLENCE [None]
  - THIRST [None]
  - TOOTHACHE [None]
